FAERS Safety Report 10684562 (Version 3)
Quarter: 2018Q3

REPORT INFORMATION
  Report Type: Spontaneous
  Country: JP (occurrence: JP)
  Receive Date: 20141231
  Receipt Date: 20180724
  Transmission Date: 20181010
  Serious: Yes (Death, Life-Threatening, Other)
  Sender: FDA-Public Use
  Company Number: JP-BAYER-2014-191253

PATIENT
  Age: 69 Year
  Sex: Male
  Weight: 54 kg

DRUGS (8)
  1. FUTHAN [Concomitant]
     Active Substance: NAFAMOSTAT MESYLATE
     Indication: DISSEMINATED INTRAVASCULAR COAGULATION
     Dosage: 250 MG, QD
     Route: 041
     Dates: start: 20141022
  2. MAINTATE [Concomitant]
     Active Substance: BISOPROLOL FUMARATE
     Indication: ARRHYTHMIA
     Dosage: 5 MG, QD
     Route: 048
     Dates: start: 20141127, end: 20141215
  3. AVELOX [Suspect]
     Active Substance: MOXIFLOXACIN HYDROCHLORIDE
     Indication: PERITONITIS BACTERIAL
     Dosage: 400 MG, QD
     Route: 048
     Dates: start: 20141208, end: 20141215
  4. VANCOMYCIN [Concomitant]
     Active Substance: VANCOMYCIN
     Dosage: 500 MG, QD
     Route: 041
     Dates: start: 20141114, end: 20141215
  5. ALESION [Concomitant]
     Active Substance: EPINASTINE HYDROCHLORIDE
     Indication: HYPERSENSITIVITY
     Dosage: 20 MG, QD
     Route: 048
     Dates: start: 20141119, end: 20141215
  6. OMEPRAL [Concomitant]
     Active Substance: OMEPRAZOLE
     Dosage: 20 MG, BID
     Dates: start: 20141001
  7. PROMAC [POLAPREZINC] [Concomitant]
     Active Substance: POLAPREZINC
     Indication: ZINC DEFICIENCY
     Dosage: 75 MG, BID
     Route: 048
     Dates: start: 20141026, end: 20141215
  8. ATARAX?P [Concomitant]
     Active Substance: HYDROXYZINE HYDROCHLORIDE
     Indication: RESTLESSNESS
     Dosage: 25 MG, QD
     Route: 048
     Dates: start: 20141119, end: 20141215

REACTIONS (2)
  - Hypoglycaemic coma [Fatal]
  - Embolic cerebral infarction [Fatal]

NARRATIVE: CASE EVENT DATE: 20141215
